FAERS Safety Report 9871238 (Version 2)
Quarter: 2014Q1

REPORT INFORMATION
  Report Type: Spontaneous
  Country: US (occurrence: US)
  Receive Date: 20140205
  Receipt Date: 20140326
  Transmission Date: 20141002
  Serious: Yes (Death)
  Sender: FDA-Public Use
  Company Number: US-GLAXOSMITHKLINE-A1058694A

PATIENT
  Age: 25 Year
  Sex: Female

DRUGS (2)
  1. VOTRIENT [Suspect]
     Indication: BRAIN NEOPLASM MALIGNANT
     Dosage: 200MG PER DAY
     Route: 048
     Dates: start: 20131012
  2. NO CONCURRENT MEDICATION [Concomitant]

REACTIONS (1)
  - Death [Fatal]
